FAERS Safety Report 16066130 (Version 2)
Quarter: 2019Q1

REPORT INFORMATION
  Report Type: Spontaneous
  Country: BR (occurrence: BR)
  Receive Date: 20190313
  Receipt Date: 20190315
  Transmission Date: 20190418
  Serious: Yes (Other)
  Sender: FDA-Public Use
  Company Number: BR-ABBVIE-19K-020-2698255-00

PATIENT
  Sex: Female
  Weight: 70 kg

DRUGS (3)
  1. HUMIRA [Suspect]
     Active Substance: ADALIMUMAB
     Indication: HIDRADENITIS
     Dosage: LOADING DOSE ?WEEK 0
     Route: 058
     Dates: start: 2016
  2. HUMIRA [Suspect]
     Active Substance: ADALIMUMAB
     Route: 058
  3. HUMIRA [Suspect]
     Active Substance: ADALIMUMAB
     Route: 058

REACTIONS (9)
  - Weight increased [Recovered/Resolved]
  - Immunodeficiency [Not Recovered/Not Resolved]
  - Hidradenitis [Unknown]
  - Hidradenitis [Recovered/Resolved]
  - Skin discolouration [Unknown]
  - Asthenia [Not Recovered/Not Resolved]
  - Rhinitis [Unknown]
  - Blister [Unknown]
  - Influenza [Unknown]
